FAERS Safety Report 8837865 (Version 1)
Quarter: 2012Q4

REPORT INFORMATION
  Report Type: 
  Country: US (occurrence: US)
  Receive Date: 20121012
  Receipt Date: 20121012
  Transmission Date: 20130627
  Serious: Yes (Other)
  Sender: FDA-Public Use
  Company Number: US-ROCHE-1140429

PATIENT
  Sex: Female
  Weight: 80.7 kg

DRUGS (1)
  1. NUTROPIN AQ [Suspect]
     Indication: GROWTH HORMONE DEFICIENCY
     Dosage: 0.10 ml dose per injection
     Route: 058
     Dates: start: 19990324

REACTIONS (1)
  - Cardiac disorder [Unknown]
